FAERS Safety Report 21383430 (Version 2)
Quarter: 2023Q1

REPORT INFORMATION
  Report Type: Spontaneous
  Country: CA (occurrence: CA)
  Receive Date: 20220927
  Receipt Date: 20230102
  Transmission Date: 20230418
  Serious: Yes (Death, Life-Threatening)
  Sender: FDA-Public Use
  Company Number: CA-TAKEDA-2022TUS068336

PATIENT
  Age: 82 Year
  Sex: Male

DRUGS (2)
  1. GAMMAGARD LIQUID [Suspect]
     Active Substance: HUMAN IMMUNOGLOBULIN G
     Indication: Immune thrombocytopenia
     Dosage: 10 GRAM
     Route: 042
     Dates: start: 2022, end: 2022
  2. GAMMAGARD LIQUID [Suspect]
     Active Substance: HUMAN IMMUNOGLOBULIN G
     Dosage: 30 GRAM
     Route: 042
     Dates: start: 2022, end: 2022

REACTIONS (11)
  - Acidosis [Fatal]
  - Brain injury [Fatal]
  - Cardioversion [Fatal]
  - Depressed level of consciousness [Fatal]
  - Endotracheal intubation [Fatal]
  - Heart rate decreased [Fatal]
  - Hypoxia [Fatal]
  - Pulse absent [Fatal]
  - Syncope [Fatal]
  - Ventricular arrhythmia [Fatal]
  - Anaphylactic shock [Fatal]

NARRATIVE: CASE EVENT DATE: 20220101
